FAERS Safety Report 5274015-8 (Version None)
Quarter: 2007Q1

REPORT INFORMATION
  Report Type: 
  Country: None (occurrence: None)
  Receive Date: 20070323
  Receipt Date: 20070316
  Transmission Date: 20070707
  Serious: Yes (Hospitalization)
  Sender: FDA-Public Use
  Company Number: FR-GLAXOSMITHKLINE-B0463095A

PATIENT
  Age: 91 Year
  Sex: Male

DRUGS (8)
  1. FLIXOVATE [Suspect]
     Route: 061
     Dates: start: 20070102, end: 20070115
  2. MODURETIC 5-50 [Concomitant]
     Route: 048
  3. STILNOX 10 MG [Concomitant]
     Route: 048
  4. LOXEN LP 50 MG [Concomitant]
     Indication: HYPERTENSION
     Route: 048
  5. KARDEGIC 160 [Concomitant]
     Route: 048
  6. TANAKAN [Concomitant]
     Route: 048
  7. DESLORATADINE [Concomitant]
     Indication: PRURITUS
     Route: 065
  8. GALEN'S CERATE [Concomitant]
     Route: 061
     Dates: start: 20070102, end: 20070115

REACTIONS (1)
  - PURPURA [None]
